FAERS Safety Report 13465901 (Version 1)
Quarter: 2017Q2

REPORT INFORMATION
  Report Type: Spontaneous
  Country: GB (occurrence: GB)
  Receive Date: 20170421
  Receipt Date: 20170421
  Transmission Date: 20170830
  Serious: Yes (Hospitalization, Other)
  Sender: FDA-Public Use
  Company Number: GB-009507513-1602GBR001639

PATIENT
  Sex: Male

DRUGS (2)
  1. SINEMET PLUS [Suspect]
     Active Substance: CARBIDOPA\LEVODOPA
     Dosage: 14 DF, QD
     Route: 048
  2. MADOPAR [Concomitant]
     Active Substance: BENSERAZIDE HYDROCHLORIDE\LEVODOPA
     Dosage: ONCE IN THE MORNING

REACTIONS (2)
  - Gastrostomy [Unknown]
  - Adverse event [Unknown]
